FAERS Safety Report 15480246 (Version 1)
Quarter: 2018Q4

REPORT INFORMATION
  Report Type: Spontaneous
  Country: FR (occurrence: FR)
  Receive Date: 20181009
  Receipt Date: 20181009
  Transmission Date: 20190205
  Serious: Yes (Hospitalization)
  Sender: FDA-Public Use
  Company Number: FR-ROCHE-2196308

PATIENT
  Age: 46 Year
  Sex: Male

DRUGS (1)
  1. VALIUM [Suspect]
     Active Substance: DIAZEPAM
     Indication: PRODUCT USED FOR UNKNOWN INDICATION
     Route: 048

REACTIONS (4)
  - Drug withdrawal syndrome [Not Recovered/Not Resolved]
  - Fall [Unknown]
  - Drug dependence [Not Recovered/Not Resolved]
  - Self-medication [Not Recovered/Not Resolved]

NARRATIVE: CASE EVENT DATE: 20180528
